FAERS Safety Report 5512279-3 (Version None)
Quarter: 2007Q4

REPORT INFORMATION
  Report Type: 
  Country: None (occurrence: None)
  Receive Date: 20071112
  Receipt Date: 20070912
  Transmission Date: 20080405
  Serious: No
  Sender: FDA-Public Use
  Company Number: A0681466A

PATIENT
  Age: 53 Year
  Sex: Female

DRUGS (2)
  1. VERAMYST [Suspect]
     Route: 045
     Dates: start: 20070810
  2. URSO 250 [Concomitant]

REACTIONS (3)
  - DYSURIA [None]
  - GENITAL ERYTHEMA [None]
  - GENITAL RASH [None]
